FAERS Safety Report 10966919 (Version 2)
Quarter: 2015Q2

REPORT INFORMATION
  Report Type: Spontaneous
  Country: AT (occurrence: AT)
  Receive Date: 20150330
  Receipt Date: 20150617
  Transmission Date: 20150821
  Serious: Yes (Hospitalization)
  Sender: FDA-Public Use
  Company Number: ALCN2015AT002019

PATIENT
  Age: 74 Year
  Sex: Male
  Weight: 75 kg

DRUGS (14)
  1. SUPRARENIN [Suspect]
     Active Substance: EPINEPHRINE
     Dosage: 0.3 ML, ONCE/SINGLE
  2. HYLASE DESSAU [Suspect]
     Active Substance: HYALURONIDASE
     Indication: LOCAL ANAESTHESIA
     Dosage: 1 DF, ONCE/SINGLE
     Dates: start: 20150304, end: 20150304
  3. RINGER^S SOLUTION [Suspect]
     Active Substance: RINGER^S SOLUTION
     Indication: INTRAOPERATIVE CARE
     Dosage: 1 DF, ONCE/SINGLE
     Dates: start: 20150304, end: 20150304
  4. XYLOCAINE [Suspect]
     Active Substance: LIDOCAINE HYDROCHLORIDE
     Indication: LOCAL ANAESTHESIA
     Dosage: 2.5 ML, ONCE/SINGLE
     Dates: start: 20150304, end: 20150304
  5. CARBOSTESIN [Suspect]
     Active Substance: BUPIVACAINE HYDROCHLORIDE
     Indication: LOCAL ANAESTHESIA
     Dosage: 2.5 ML, ONCE/SINGLE
     Dates: start: 20150304, end: 20150304
  6. REFOBACIN [Suspect]
     Active Substance: GENTAMICIN SULFATE
     Indication: INTRAOPERATIVE CARE
     Dosage: 1 DF, ONCE/SINGLE
     Dates: start: 20150304, end: 20150304
  7. BETAISODONA [Suspect]
     Active Substance: POVIDONE-IODINE
     Indication: INTRAOPERATIVE CARE
     Dosage: 1 DF, ONCE/SINGLE
     Dates: start: 20150304, end: 20150304
  8. REFOBACIN [Suspect]
     Active Substance: GENTAMICIN SULFATE
     Indication: INFUSION
     Dosage: 40 MG, ONCE/SINGLE
     Route: 041
  9. BSS [Suspect]
     Active Substance: CALCIUM CHLORIDE\MAGNESIUM CHLORIDE\POTASSIUM CHLORIDE\SODIUM ACETATE\SODIUM CHLORIDE\SODIUM CITRATE
     Indication: INTRAOPERATIVE CARE
     Dosage: 1 DF, ONCE/SINGLE
     Route: 031
     Dates: start: 20150304, end: 20150304
  10. RINGER LACTATE                     /02148201/ [Suspect]
     Active Substance: RINGER^S SOLUTION, LACTATED
     Indication: INFUSION
     Dosage: 1 DF, ONCE/SINGLE
     Route: 041
     Dates: start: 20150304, end: 20150304
  11. MIOTICOL [Suspect]
     Active Substance: CARBACHOL
     Indication: INTRAOPERATIVE CARE
     Dosage: 1 DF, ONCE/SINGLE
     Dates: start: 20150304, end: 20150304
  12. HEALON [Suspect]
     Active Substance: HYALURONATE SODIUM
     Indication: INTRAOPERATIVE CARE
     Dosage: UNK
     Dates: start: 20150304, end: 20150304
  13. SUPRARENIN [Suspect]
     Active Substance: EPINEPHRINE
     Indication: INTRAOPERATIVE CARE
     Dosage: 1 DF, ONCE/SINGLE
     Dates: start: 20150304, end: 20150304
  14. REFOBACIN [Suspect]
     Active Substance: GENTAMICIN SULFATE
     Indication: POSTOPERATIVE CARE
     Dosage: UNK
     Route: 047

REACTIONS (4)
  - Corneal oedema [Recovering/Resolving]
  - Toxic anterior segment syndrome [Recovering/Resolving]
  - Hypopyon [Recovering/Resolving]
  - Vitritis [Recovering/Resolving]

NARRATIVE: CASE EVENT DATE: 20150305
